FAERS Safety Report 6489577-2 (Version None)
Quarter: 2009Q4

REPORT INFORMATION
  Report Type: 
  Country: None (occurrence: None)
  Receive Date: 20091210
  Receipt Date: 20091130
  Transmission Date: 20100525
  Serious: Yes (Hospitalization)
  Sender: FDA-Public Use
  Company Number: TW-GENENTECH-291223

PATIENT
  Age: 59 Year
  Sex: Male

DRUGS (2)
  1. AVASTIN [Suspect]
     Indication: LUNG ADENOCARCINOMA
     Dosage: 300 MG, Q3W
     Route: 042
     Dates: start: 20090401, end: 20091101
  2. ERLOTINIB [Concomitant]
     Indication: DRUG USE FOR UNKNOWN INDICATION
     Dosage: UNK
     Dates: start: 20090101, end: 20091001

REACTIONS (1)
  - PNEUMOTHORAX [None]
